FAERS Safety Report 25676947 (Version 1)
Quarter: 2025Q3

REPORT INFORMATION
  Report Type: Spontaneous
  Country: US (occurrence: US)
  Receive Date: 20250813
  Receipt Date: 20250813
  Transmission Date: 20251020
  Serious: Yes (Other)
  Sender: B. BRAUN MEDICAL INC.
  Company Number: US-B. Braun Medical Inc.-US-BBM-202503028

PATIENT
  Sex: Female

DRUGS (7)
  1. CEFOXITIN [Suspect]
     Active Substance: CEFOXITIN SODIUM
     Indication: Infection
  2. AMIKACIN [Suspect]
     Active Substance: AMIKACIN
  3. TIGECYCLINE [Suspect]
     Active Substance: TIGECYCLINE
  4. LINEZOLID [Suspect]
     Active Substance: LINEZOLID
  5. TEDIZOLID [Suspect]
     Active Substance: TEDIZOLID
  6. IMIPENEM [Concomitant]
     Active Substance: IMIPENEM
  7. OMADACYCLINE [Concomitant]
     Active Substance: OMADACYCLINE

REACTIONS (1)
  - Drug intolerance [Unknown]
